FAERS Safety Report 9408359 (Version 1)
Quarter: 2013Q3

REPORT INFORMATION
  Report Type: Other
  Country: CH (occurrence: CH)
  Receive Date: 20130718
  Receipt Date: 20130718
  Transmission Date: 20140515
  Serious: Yes (Death, Other)
  Sender: FDA-Public Use
  Company Number: CH-BRISTOL-MYERS SQUIBB COMPANY-19085521

PATIENT
  Age: 70 Year
  Sex: Female

DRUGS (5)
  1. ETOPOSIDE [Suspect]
     Indication: T-CELL LYMPHOMA
  2. IFOSFAMIDE [Suspect]
     Indication: T-CELL LYMPHOMA
  3. ASPARAGINASE [Suspect]
     Indication: T-CELL LYMPHOMA
  4. METHOTREXATE [Suspect]
     Indication: T-CELL LYMPHOMA
  5. DEXAMETHASONE [Suspect]
     Indication: T-CELL LYMPHOMA

REACTIONS (4)
  - Malignant neoplasm progression [Fatal]
  - Multi-organ failure [Fatal]
  - Neutropenia [Unknown]
  - Diverticular perforation [Unknown]
